FAERS Safety Report 8089283-7 (Version None)
Quarter: 2012Q1

REPORT INFORMATION
  Report Type: 
  Country: None (occurrence: None)
  Receive Date: 20120128
  Receipt Date: 20110629
  Transmission Date: 20120608
  Serious: No
  Sender: FDA-Public Use
  Company Number: US-ABBOTT-11P-163-0720557-00

PATIENT
  Sex: Female
  Weight: 85.352 kg

DRUGS (8)
  1. HUMIRA [Suspect]
     Indication: RHEUMATOID ARTHRITIS
     Route: 058
     Dates: start: 20101103
  2. METHOTREXATE [Concomitant]
     Dosage: 6 TAB Q WK
     Route: 048
     Dates: start: 20100831, end: 20101101
  3. METHOTREXATE [Concomitant]
     Dosage: 3 TAB Q WK
     Route: 048
     Dates: start: 20101103
  4. PROAIR HFA [Concomitant]
     Indication: ASTHMA
  5. BYSTOLIC [Concomitant]
     Indication: HYPERTENSION
     Route: 048
  6. FOLIC ACID [Concomitant]
     Indication: VITAMIN SUPPLEMENTATION
  7. NAPROXEN (ALEVE) [Concomitant]
     Indication: HEADACHE
     Dosage: AS REQUIRED
  8. METHOTREXATE [Concomitant]
     Indication: RHEUMATOID ARTHRITIS
     Dosage: 4 PILLS ONCE A WEEK
     Route: 048
     Dates: start: 20100723, end: 20100801

REACTIONS (3)
  - LUNG NEOPLASM [None]
  - DIVERTICULITIS [None]
  - ABDOMINAL PAIN [None]
